FAERS Safety Report 9717697 (Version 2)
Quarter: 2013Q4

REPORT INFORMATION
  Report Type: Report from Study
  Country: IT (occurrence: IT)
  Receive Date: 20131127
  Receipt Date: 20131209
  Transmission Date: 20140711
  Serious: Yes (Death, Hospitalization, Other)
  Sender: FDA-Public Use
  Company Number: IT-EXELIXIS-XL18413003678

PATIENT
  Age: 67 Year
  Sex: Male
  Weight: 57 kg

DRUGS (8)
  1. XL184 [Suspect]
     Indication: PROSTATE CANCER
     Dosage: 60 MG, QD
     Route: 048
     Dates: start: 20130930
  2. XL184 [Suspect]
     Indication: PROSTATE CANCER
     Dosage: 5 MG, BID
     Route: 048
     Dates: start: 20130930
  3. MS CONTIN [Concomitant]
  4. DELTACORTENE [Concomitant]
  5. OMEPRAZOLE [Concomitant]
  6. ENANTONE [Concomitant]
  7. TRIATEC [Concomitant]
  8. BISOPROLOL [Concomitant]

REACTIONS (2)
  - Anaemia [Not Recovered/Not Resolved]
  - Pneumonia [Fatal]
